FAERS Safety Report 16947124 (Version 1)
Quarter: 2019Q4

REPORT INFORMATION
  Report Type: Spontaneous
  Country: NL (occurrence: DE)
  Receive Date: 20191022
  Receipt Date: 20191022
  Transmission Date: 20200122
  Serious: Yes (Hospitalization, Other)
  Sender: FDA-Public Use
  Company Number: DE-FRESENIUS KABI-FK201911194

PATIENT
  Age: 45 Year
  Sex: Male

DRUGS (5)
  1. PANTOPRAZOLE SODIUM SESQUIHYDRATE [Concomitant]
     Active Substance: PANTOPRAZOLE SODIUM
     Indication: PRODUCT USED FOR UNKNOWN INDICATION
     Route: 048
  2. PROPOFOL (MANUFACTURER UNKNOWN) [Suspect]
     Active Substance: PROPOFOL
     Indication: ENDOSCOPIC RETROGRADE CHOLANGIOPANCREATOGRAPHY
     Route: 042
  3. PROPOFOL (MANUFACTURER UNKNOWN) [Suspect]
     Active Substance: PROPOFOL
     Route: 065
     Dates: start: 2018
  4. PANCREATIN [Concomitant]
     Active Substance: PANCRELIPASE
     Indication: PRODUCT USED FOR UNKNOWN INDICATION
     Dosage: 2-2-1
     Route: 048
  5. MIDAZOLAM [Concomitant]
     Active Substance: MIDAZOLAM HYDROCHLORIDE
     Indication: ENDOSCOPIC RETROGRADE CHOLANGIOPANCREATOGRAPHY
     Route: 042

REACTIONS (3)
  - Propofol infusion syndrome [Recovering/Resolving]
  - Blood creatine phosphokinase increased [Recovering/Resolving]
  - Transaminases increased [Recovering/Resolving]

NARRATIVE: CASE EVENT DATE: 20190808
